FAERS Safety Report 21738632 (Version 2)
Quarter: 2022Q4

REPORT INFORMATION
  Report Type: Spontaneous
  Country: US (occurrence: US)
  Receive Date: 20221216
  Receipt Date: 20221219
  Transmission Date: 20230112
  Serious: No
  Sender: FDA-Public Use
  Company Number: US-GSKCCFUS-Case-01574251_AE-88972

PATIENT
  Sex: Female

DRUGS (1)
  1. TRELEGY ELLIPTA [Suspect]
     Active Substance: FLUTICASONE FUROATE\UMECLIDINIUM BROMIDE\VILANTEROL TRIFENATATE
     Indication: Product used for unknown indication
     Dosage: UNK

REACTIONS (10)
  - Swollen tongue [Recovering/Resolving]
  - Glossodynia [Recovering/Resolving]
  - Tongue biting [Recovering/Resolving]
  - Candida infection [Recovered/Resolved]
  - Dysphonia [Recovering/Resolving]
  - Rhinorrhoea [Recovering/Resolving]
  - Paranasal sinus inflammation [Recovering/Resolving]
  - Pollakiuria [Recovered/Resolved]
  - Dysuria [Recovered/Resolved]
  - Drug ineffective [Not Recovered/Not Resolved]
